FAERS Safety Report 10025041 (Version 2)
Quarter: 2014Q1

REPORT INFORMATION
  Report Type: Spontaneous
  Country: US (occurrence: US)
  Receive Date: 20140320
  Receipt Date: 20140320
  Transmission Date: 20141002
  Serious: Yes (Disabling)
  Sender: FDA-Public Use
  Company Number: US-GE HEALTHCARE MEDICAL DIAGNOSTICS-OSCN-PR-0811S-0628

PATIENT
  Age: 30 Year
  Sex: Female

DRUGS (2)
  1. OMNISCAN [Suspect]
     Indication: PANCREATITIS
     Route: 042
     Dates: start: 20050512, end: 20050512
  2. GADOLINIUM (UNSPECIFIED) [Suspect]
     Indication: PRODUCT USED FOR UNKNOWN INDICATION
     Dates: start: 19960628, end: 19960628

REACTIONS (1)
  - Nephrogenic systemic fibrosis [Not Recovered/Not Resolved]
